FAERS Safety Report 10178403 (Version 1)
Quarter: 2014Q2

REPORT INFORMATION
  Report Type: Spontaneous
  Country: US (occurrence: US)
  Receive Date: 20140519
  Receipt Date: 20140519
  Transmission Date: 20141212
  Serious: No
  Sender: FDA-Public Use
  Company Number: US-DRREDDYS-USA/USA/13/0028870

PATIENT
  Sex: Female

DRUGS (1)
  1. RANITIDINE TABLETS 75 MG [Suspect]
     Indication: GASTROOESOPHAGEAL REFLUX DISEASE
     Route: 048
     Dates: start: 201301

REACTIONS (4)
  - Product commingling [Unknown]
  - Expired product administered [Unknown]
  - No adverse event [Unknown]
  - Product quality issue [Unknown]
